FAERS Safety Report 4633527-8 (Version None)
Quarter: 2005Q2

REPORT INFORMATION
  Report Type: 
  Country: None (occurrence: None)
  Receive Date: 20050331
  Receipt Date: 20041203
  Transmission Date: 20051028
  Serious: Yes (Other)
  Sender: FDA-Public Use
  Company Number: 200415861BCC

PATIENT
  Age: 69 Year
  Sex: Female
  Weight: 73.9363 kg

DRUGS (8)
  1. ALEVE (CAPLET) [Suspect]
     Indication: PAIN
     Dosage: 220 MG, ONCE, ORAL
     Route: 048
     Dates: start: 20041130
  2. COZAAR [Concomitant]
  3. LEXAPRO [Concomitant]
  4. PRAVACHOL [Concomitant]
  5. OMEGA 3 [Concomitant]
  6. CALCIUM GLUCONATE [Concomitant]
  7. CHONDROITIN [Concomitant]
  8. MULTI-VITAMIN [Concomitant]

REACTIONS (6)
  - ANAPHYLACTIC SHOCK [None]
  - ERYTHEMA [None]
  - LOSS OF CONSCIOUSNESS [None]
  - PRURITUS [None]
  - SKIN BURNING SENSATION [None]
  - VOMITING [None]
